FAERS Safety Report 10061080 (Version 1)
Quarter: 2014Q2

REPORT INFORMATION
  Report Type: Spontaneous
  Country: US (occurrence: US)
  Receive Date: 20140405
  Receipt Date: 20140405
  Transmission Date: 20141212
  Serious: No
  Sender: FDA-Public Use
  Company Number: US-GE HEALTHCARE MEDICAL DIAGNOSTICS-OSCN-PR-1312S-0148

PATIENT
  Sex: Male

DRUGS (4)
  1. OMNISCAN [Suspect]
     Indication: PRODUCT USED FOR UNKNOWN INDICATION
     Route: 042
     Dates: start: 20041104, end: 20041104
  2. OMNISCAN [Suspect]
     Route: 042
     Dates: start: 20051105, end: 20051105
  3. MAGNEVIST [Suspect]
     Indication: PRODUCT USED FOR UNKNOWN INDICATION
     Route: 042
     Dates: start: 20070207, end: 20070207
  4. MAGNEVIST [Suspect]
     Route: 042
     Dates: start: 20070210, end: 20070210

REACTIONS (1)
  - Unevaluable event [Not Recovered/Not Resolved]
